FAERS Safety Report 23972419 (Version 1)
Quarter: 2024Q2

REPORT INFORMATION
  Report Type: Spontaneous
  Country: US (occurrence: US)
  Receive Date: 20240613
  Receipt Date: 20240613
  Transmission Date: 20240716
  Serious: No
  Sender: FDA-Public Use
  Company Number: US-SANOFI-02076501

PATIENT
  Sex: Male

DRUGS (1)
  1. DUPIXENT [Suspect]
     Active Substance: DUPILUMAB
     Indication: Dermatitis atopic
     Dosage: UNK
     Dates: start: 2017

REACTIONS (5)
  - Injection site scar [Unknown]
  - Injection site vesicles [Recovered/Resolved]
  - Injection site induration [Unknown]
  - Rash [Unknown]
  - Therapeutic response shortened [Unknown]
